FAERS Safety Report 17154329 (Version 2)
Quarter: 2021Q4

REPORT INFORMATION
  Report Type: Report from Study
  Country: US (occurrence: US)
  Receive Date: 20191213
  Receipt Date: 20211112
  Transmission Date: 20220303
  Serious: No
  Sender: FDA-Public Use
  Company Number: US-NOVARTISTESTPH-NVSC2019US019620

PATIENT
  Sex: Female

DRUGS (2)
  1. KISQALI [Suspect]
     Active Substance: RIBOCICLIB
     Indication: Breast mass
     Dosage: 1 DF, QD (2.5 MG/KG(MILIGRAM/KILOGRAM))
     Route: 048
  2. KISQALI [Suspect]
     Active Substance: RIBOCICLIB
     Dosage: UNK
     Route: 065

REACTIONS (5)
  - Oesophageal oedema [Unknown]
  - Dehydration [Unknown]
  - Mental disorder [Unknown]
  - Fall [Unknown]
  - Alopecia [Unknown]
